FAERS Safety Report 10143106 (Version 2)
Quarter: 2014Q2

REPORT INFORMATION
  Report Type: Spontaneous
  Country: US (occurrence: None)
  Receive Date: 20140428
  Receipt Date: 20140507
  Transmission Date: 20141212
  Serious: Yes (Other)
  Sender: FDA-Public Use
  Company Number: HA14-136-AE

PATIENT
  Age: 44 Year
  Sex: Female
  Weight: 61.24 kg

DRUGS (2)
  1. IBUPROFEN TABLETS [Suspect]
     Indication: SWELLING
     Dosage: 1 TABLET
     Route: 048
     Dates: start: 20140409, end: 20140409
  2. VITAMINS [Concomitant]

REACTIONS (10)
  - Hypersensitivity [None]
  - Eye swelling [None]
  - Swelling face [None]
  - Scratch [None]
  - Pruritus [None]
  - Rash [None]
  - Head discomfort [None]
  - Ear discomfort [None]
  - Throat irritation [None]
  - Drug hypersensitivity [None]
